FAERS Safety Report 8585993 (Version 2)
Quarter: 2012Q4

REPORT INFORMATION
  Report Type: 
  Country: BR (occurrence: BR)
  Receive Date: 20120530
  Receipt Date: 20121101
  Transmission Date: 20130627
  Serious: Yes (Hospitalization)
  Sender: FDA-Public Use
  Company Number: BR-ASTRAZENECA-2012SE33039

PATIENT
  Age: 74 Year
  Sex: Male
  Weight: 59 kg

DRUGS (2)
  1. CRESTOR [Suspect]
     Route: 048
     Dates: start: 2009
  2. BRILINTA [Suspect]
     Route: 048
     Dates: start: 2012

REACTIONS (2)
  - Arterial occlusive disease [Unknown]
  - Tachycardia [Not Recovered/Not Resolved]
